FAERS Safety Report 8783504 (Version 1)
Quarter: 2012Q4

REPORT INFORMATION
  Report Type: 
  Country: US (occurrence: US)
  Receive Date: 20120913
  Receipt Date: 20120913
  Transmission Date: 20130627
  Serious: Yes (Death, Hospitalization)
  Sender: FDA-Public Use
  Company Number: PHHY2012US078737

PATIENT
  Age: 53 Year
  Sex: Female

DRUGS (2)
  1. PREDNISONE [Suspect]
     Indication: RETINAL PIGMENT EPITHELIOPATHY
     Dosage: 80 mg, daily
     Route: 048
  2. PREDNISONE [Suspect]
     Dosage: 20 mg, daily
     Route: 048

REACTIONS (6)
  - Vasculitis cerebral [Fatal]
  - Respiratory distress [Fatal]
  - Headache [Fatal]
  - Slow response to stimuli [Fatal]
  - Brain herniation [Fatal]
  - Cerebral infarction [Fatal]
